FAERS Safety Report 4773866-3 (Version None)
Quarter: 2005Q3

REPORT INFORMATION
  Report Type: 
  Country: None (occurrence: None)
  Receive Date: 20050920
  Receipt Date: 20050913
  Transmission Date: 20060218
  Serious: Yes (Other)
  Sender: FDA-Public Use
  Company Number: US-ROCHE-417732

PATIENT
  Age: 48 Year
  Sex: Female
  Weight: 72.6 kg

DRUGS (8)
  1. PEGASYS [Suspect]
     Dosage: STRENGTH AND FORMULATION REPORTED AS 180 MCG/0.5 ML
     Route: 058
     Dates: start: 20050205
  2. COPEGUS [Suspect]
     Route: 048
     Dates: start: 20050205
  3. ZOLOFT [Concomitant]
     Route: 048
     Dates: start: 20050115
  4. SYNTHROID [Concomitant]
     Indication: HYPOTHYROIDISM
     Route: 048
  5. FUROSEMIDE [Concomitant]
     Route: 048
  6. COMBIPATCH [Concomitant]
  7. ESTRATEST [Concomitant]
  8. M.V.I. [Concomitant]

REACTIONS (5)
  - DENTAL CARIES [None]
  - FATIGUE [None]
  - SENSITIVITY OF TEETH [None]
  - SINUS HEADACHE [None]
  - WHITE BLOOD CELL COUNT DECREASED [None]
